FAERS Safety Report 15669041 (Version 2)
Quarter: 2018Q4

REPORT INFORMATION
  Report Type: Spontaneous
  Country: CN (occurrence: CN)
  Receive Date: 20181129
  Receipt Date: 20181206
  Transmission Date: 20190205
  Serious: Yes (Other)
  Sender: FDA-Public Use
  Company Number: CN-ROCHE-2221279

PATIENT
  Age: 58 Year
  Sex: Female
  Weight: 63 kg

DRUGS (8)
  1. BEVACIZUMAB. [Suspect]
     Active Substance: BEVACIZUMAB
     Dosage: ON DAY 1
     Route: 065
     Dates: start: 20181121
  2. XELODA [Suspect]
     Active Substance: CAPECITABINE
     Dosage: MORNING: 2000MG, NIGHT: 1500MG
     Route: 048
     Dates: start: 20181023
  3. BEVACIZUMAB. [Suspect]
     Active Substance: BEVACIZUMAB
     Indication: RECTAL ADENOCARCINOMA
     Dosage: ON DAY 1
     Route: 065
     Dates: start: 20180926
  4. XELODA [Suspect]
     Active Substance: CAPECITABINE
     Indication: RECTAL ADENOCARCINOMA
     Dosage: MORNING: 2000MG, NIGHT: 1500MG
     Route: 048
     Dates: start: 20180512
  5. XELODA [Suspect]
     Active Substance: CAPECITABINE
     Dosage: MORNING: 2000MG, NIGHT: 1500MG
     Route: 048
     Dates: start: 20180926
  6. OXALIPLATIN. [Suspect]
     Active Substance: OXALIPLATIN
     Indication: RECTAL ADENOCARCINOMA
     Dosage: ON DAY 1
     Route: 041
     Dates: start: 20180511
  7. XELODA [Suspect]
     Active Substance: CAPECITABINE
     Dosage: MORNING: 2000MG, NIGHT: 1500MG
     Route: 048
     Dates: start: 20181121
  8. BEVACIZUMAB. [Suspect]
     Active Substance: BEVACIZUMAB
     Dosage: ON DAY 1
     Route: 065
     Dates: start: 20181023

REACTIONS (7)
  - Intestinal obstruction [Recovering/Resolving]
  - Vomiting [Recovered/Resolved]
  - Memory impairment [Recovering/Resolving]
  - Depression [Recovering/Resolving]
  - Peritumoural oedema [Unknown]
  - Muscular weakness [Recovering/Resolving]
  - Nausea [Recovered/Resolved]

NARRATIVE: CASE EVENT DATE: 20180511
